FAERS Safety Report 15970412 (Version 1)
Quarter: 2019Q1

REPORT INFORMATION
  Report Type: Report from Study
  Country: US (occurrence: US)
  Receive Date: 20190215
  Receipt Date: 20190215
  Transmission Date: 20190418
  Serious: Yes (Hospitalization)
  Sender: FDA-Public Use
  Company Number: US-AMAG PHARMACEUTICALS, INC.-AMAG201802641

PATIENT
  Age: 34 Year
  Sex: Female

DRUGS (4)
  1. FOLGARD [Concomitant]
     Indication: PRODUCT USED FOR UNKNOWN INDICATION
     Dosage: 1 UNITS, QD
     Route: 048
     Dates: start: 20180220
  2. ZYRTEC [Concomitant]
     Active Substance: CETIRIZINE HYDROCHLORIDE
     Indication: PRODUCT USED FOR UNKNOWN INDICATION
     Dosage: 10 MG, PRN
     Route: 048
     Dates: start: 20180222
  3. MAKENA [Suspect]
     Active Substance: HYDROXYPROGESTERONE CAPROATE
     Indication: PREMATURE DELIVERY
     Dosage: 250 MG/ML, WEEKLY
     Route: 030
     Dates: start: 20180406
  4. PRENATAL VITAMINS [Concomitant]
     Active Substance: VITAMINS
     Indication: PREGNANCY
     Dosage: 1 UNITS, QD
     Route: 048
     Dates: start: 20180220

REACTIONS (8)
  - Dyspepsia [Not Recovered/Not Resolved]
  - Injection site rash [Not Recovered/Not Resolved]
  - Diarrhoea [Not Recovered/Not Resolved]
  - Injection site pruritus [Not Recovered/Not Resolved]
  - Product administration error [Unknown]
  - Migraine [Not Recovered/Not Resolved]
  - Flank pain [Recovered/Resolved]
  - Premature labour [Not Recovered/Not Resolved]

NARRATIVE: CASE EVENT DATE: 2018
